FAERS Safety Report 6074402-4 (Version None)
Quarter: 2009Q1

REPORT INFORMATION
  Report Type: 
  Country: None (occurrence: None)
  Receive Date: 20090206
  Receipt Date: 20090129
  Transmission Date: 20090719
  Serious: Yes (Hospitalization)
  Sender: FDA-Public Use
  Company Number: DSA_33155_2009

PATIENT
  Sex: Male

DRUGS (2)
  1. LORAZEPAM [Suspect]
     Dosage: 25 MG 1X, NOT THE PRESCRIBED AMOUNT, ORAL
     Route: 048
     Dates: start: 20090128, end: 20090128
  2. ALCOHOL (ALCOHOL - ETHANOL) [Suspect]
     Dosage: AMOUNT UNKNOWN, ORAL
     Route: 048
     Dates: start: 20090128, end: 20090128

REACTIONS (6)
  - ALCOHOL USE [None]
  - FEELING DRUNK [None]
  - INTENTIONAL OVERDOSE [None]
  - SOMNOLENCE [None]
  - SUICIDE ATTEMPT [None]
  - TACHYCARDIA [None]
